FAERS Safety Report 20827432 (Version 1)
Quarter: 2022Q2

REPORT INFORMATION
  Report Type: Spontaneous
  Country: FR (occurrence: FR)
  Receive Date: 20220513
  Receipt Date: 20220513
  Transmission Date: 20220721
  Serious: Yes (Hospitalization)
  Sender: FDA-Public Use
  Company Number: None

PATIENT
  Age: 38 Year
  Sex: Female
  Weight: 66 kg

DRUGS (7)
  1. CLOZAPINE [Suspect]
     Active Substance: CLOZAPINE
     Indication: Suicide attempt
     Dosage: UNIT DOSE: 6.2 GM, DURATION : 1 DAY
     Route: 048
     Dates: start: 20220403, end: 20220403
  2. LAMOTRIGINE [Suspect]
     Active Substance: LAMOTRIGINE
     Indication: Suicide attempt
     Dosage: UNIT DOSE: 75 MG, DURATION : 1 DAY
     Route: 048
     Dates: start: 20220403, end: 20220403
  3. PROPRANOLOL [Suspect]
     Active Substance: PROPRANOLOL HYDROCHLORIDE
     Indication: Suicide attempt
     Dosage: UNIT DOSE: 520 MG, DURATION :1 DAY
     Route: 048
     Dates: start: 20220403, end: 20220403
  4. CYAMEMAZINE [Suspect]
     Active Substance: CYAMEMAZINE
     Indication: Suicide attempt
     Dosage: UNIT DOSE: 4100 MG, DURATION : 1 DAY
     Route: 048
     Dates: start: 20220403, end: 20220403
  5. TROPATEPINE HYDROCHLORIDE [Suspect]
     Active Substance: TROPATEPINE HYDROCHLORIDE
     Indication: Suicide attempt
     Dosage: UNIT DOSE: 80 MG, DURATION : 1 DAY
     Route: 048
     Dates: start: 20220403, end: 20220403
  6. HALDOL [Suspect]
     Active Substance: HALOPERIDOL
     Indication: Suicide attempt
     Dosage: UNIT DOSE: 205 MG, : 1 DAY
     Route: 048
     Dates: start: 20220403, end: 20220403
  7. AKINETON [Suspect]
     Active Substance: BIPERIDEN HYDROCHLORIDE
     Indication: Suicide attempt
     Dosage: UNIT DOSE: 52 MG, DURATION : 1 DAY
     Route: 048
     Dates: start: 20220403, end: 20220403

REACTIONS (3)
  - Coma [Recovered/Resolved]
  - Toxicity to various agents [Recovered/Resolved]
  - Cardiogenic shock [Recovered/Resolved]

NARRATIVE: CASE EVENT DATE: 20220403
